FAERS Safety Report 23777231 (Version 2)
Quarter: 2024Q2

REPORT INFORMATION
  Report Type: Spontaneous
  Country: US (occurrence: US)
  Receive Date: 20240424
  Receipt Date: 20240424
  Transmission Date: 20240716
  Serious: Yes (Disabling, Other)
  Sender: FDA-Public Use
  Company Number: US-Edgewell Personal Care, LLC-2155933

PATIENT
  Age: 42 Year
  Sex: Male

DRUGS (1)
  1. BANANA BOAT ULTRA SPORT SUNSCREEN BROAD SPECTRUM SPF 30 [Suspect]
     Active Substance: AVOBENZONE\HOMOSALATE\OCTISALATE\OCTOCRYLENE
     Indication: Prophylaxis against solar radiation
     Route: 061
     Dates: end: 20240406

REACTIONS (8)
  - Skin burning sensation [Recovered/Resolved with Sequelae]
  - Burns second degree [Recovered/Resolved with Sequelae]
  - Skin exfoliation [Recovered/Resolved]
  - Burns second degree [Recovered/Resolved with Sequelae]
  - Sensitive skin [Recovered/Resolved with Sequelae]
  - Scar [Recovered/Resolved with Sequelae]
  - Blister [Recovered/Resolved with Sequelae]
  - Erythema [Recovered/Resolved with Sequelae]
